FAERS Safety Report 9524041 (Version 1)
Quarter: 2013Q3

REPORT INFORMATION
  Report Type: Spontaneous
  Country: US (occurrence: None)
  Receive Date: 20130912
  Receipt Date: 20130912
  Transmission Date: 20140515
  Serious: Yes (Hospitalization)
  Sender: FDA-Public Use
  Company Number: None

PATIENT
  Age: 59 Year
  Sex: Female
  Weight: 69.7 kg

DRUGS (33)
  1. HYDROXYCHLOROQUINE [Suspect]
     Indication: PLASMA CELL MYELOMA
     Route: 048
     Dates: start: 20130308
  2. ACYCLOVIR [Concomitant]
  3. ALBUTEROL (VENTOLIN HFA) [Concomitant]
  4. ALPRAZOLAM [Concomitant]
  5. AMOXICILLIN-VLAVULANATE (AUGMENTIN) [Concomitant]
  6. ASPIRIN [Concomitant]
  7. CARBOCYMETHYLCELLULOSE (REFRESH CELLUVISC) [Concomitant]
  8. CARVEDILOL [Concomitant]
  9. CHLORHEXIDINE [Concomitant]
  10. CICLOPIROX [Concomitant]
  11. CYCLOSPORINE (RESTASIS) [Concomitant]
  12. DIPHENHYDRAMINE-LIDOCAINE-MAALOX [Concomitant]
  13. FEXOFENADINE [Concomitant]
  14. FLUOXETINE HCL (PROZAC ORAL) [Concomitant]
  15. FUROSEMIDE [Concomitant]
  16. FUROSEMIDE [Concomitant]
  17. GABAPENTIN [Concomitant]
  18. HYDROMORPHONE [Concomitant]
  19. HYDROXYCHLOROQUINE SULFATE (INV HYDROXYCHLOROQUINE) [Concomitant]
  20. INV SIROLIMUS [Concomitant]
  21. LOPERAMIDE [Concomitant]
  22. LORAZEPAM [Concomitant]
  23. MAGNESIUM OXIDE [Concomitant]
  24. SINGULAIR [Concomitant]
  25. NYSTATIN [Concomitant]
  26. OMEPRAZOLE [Concomitant]
  27. ONDANSETRON (ZOFRAN) [Concomitant]
  28. OXYCODONE [Concomitant]
  29. POTASSIUM CHLORIDE [Concomitant]
  30. PROCHLORPERAZINE [Concomitant]
  31. QUETIAPINE [Concomitant]
  32. SUMATRIPTAN [Concomitant]
  33. ZOLEDRONIC ACID (ZOMETA IV) [Concomitant]

REACTIONS (3)
  - Abdominal pain [None]
  - Diarrhoea [None]
  - Neuralgia [None]
